FAERS Safety Report 17078258 (Version 1)
Quarter: 2019Q4

REPORT INFORMATION
  Report Type: Report from Study
  Country: US (occurrence: US)
  Receive Date: 20191126
  Receipt Date: 20191126
  Transmission Date: 20200122
  Serious: Yes (Hospitalization, Other)
  Sender: FDA-Public Use
  Company Number: US-EXELIXIS-XL18419025557

PATIENT
  Sex: Male
  Weight: 110 kg

DRUGS (6)
  1. NIVOLUMAB [Suspect]
     Active Substance: NIVOLUMAB
     Indication: GENITOURINARY TRACT NEOPLASM
     Dosage: 113 MILLIGRAM (CYCLE 21 DAYS NIVOLUMAB 3 MG/KG IV ON DAY 1) (CYCLE 28 DAYS 480 MG IV ON DAY 1)
     Route: 042
     Dates: start: 20190904, end: 20190925
  2. IPILIMUMAB [Suspect]
     Active Substance: IPILIMUMAB
     Indication: GENITOURINARY TRACT NEOPLASM
     Dosage: 339.3 MILLIGRAM (CYCLE 21 DAYS IPILIMUMAB MG/KG IV ON DAY 1)
     Route: 042
     Dates: start: 20190904, end: 20190925
  3. OXYCODONE HYDROCHLORIDE. [Concomitant]
     Active Substance: OXYCODONE HYDROCHLORIDE
     Indication: PRODUCT USED FOR UNKNOWN INDICATION
     Dosage: 5 MILLIGRAM
     Route: 065
  4. PREDNISONE. [Concomitant]
     Active Substance: PREDNISONE
     Indication: PRODUCT USED FOR UNKNOWN INDICATION
     Dosage: 20 MILLIGRAM
     Route: 065
  5. XL184 [Suspect]
     Active Substance: CABOZANTINIB
     Indication: GENITOURINARY TRACT NEOPLASM
     Dosage: 40 MG, QD
     Route: 048
     Dates: start: 20190904, end: 20190925
  6. OMEPRAZOLE. [Concomitant]
     Active Substance: OMEPRAZOLE
     Indication: PRODUCT USED FOR UNKNOWN INDICATION
     Dosage: 20 MILLIGRAM
     Route: 065

REACTIONS (2)
  - Febrile neutropenia [Recovering/Resolving]
  - Hydronephrosis [Unknown]

NARRATIVE: CASE EVENT DATE: 20191025
